FAERS Safety Report 25229100 (Version 1)
Quarter: 2025Q2

REPORT INFORMATION
  Report Type: Spontaneous
  Country: IN (occurrence: IN)
  Receive Date: 20250423
  Receipt Date: 20250423
  Transmission Date: 20250717
  Serious: Yes (Life-Threatening, Disabling)
  Sender: MACLEODS
  Company Number: IN-MLMSERVICE-20250404-PI469638-00048-1

PATIENT

DRUGS (9)
  1. OLANZAPINE [Suspect]
     Active Substance: OLANZAPINE
     Indication: Psychotic disorder
     Dosage: GIVEN IN HIGH DOSES (12 HOUR)
     Route: 065
     Dates: start: 2022, end: 202206
  2. RISPERIDONE [Suspect]
     Active Substance: RISPERIDONE
     Indication: Psychotic disorder
     Dosage: GIVEN IN HIGH DOSES (8 HOUR)
     Route: 065
     Dates: start: 2022, end: 202206
  3. TRIFLUOPERAZINE [Suspect]
     Active Substance: TRIFLUOPERAZINE HYDROCHLORIDE
     Indication: Psychotic disorder
     Dosage: GIVEN IN HIGH DOSES
     Route: 065
     Dates: start: 2022, end: 202206
  4. AMISULPRIDE [Suspect]
     Active Substance: AMISULPRIDE
     Indication: Psychotic disorder
     Dosage: GIVEN IN HIGH DOSES (12 HOUR)
     Route: 065
     Dates: start: 2022, end: 202206
  5. CLOZAPINE [Suspect]
     Active Substance: CLOZAPINE
     Indication: Psychotic disorder
     Dosage: GIVEN IN HIGH DOSES
     Route: 065
     Dates: start: 2022, end: 202206
  6. FLUPHENAZINE [Suspect]
     Active Substance: FLUPHENAZINE
     Indication: Psychotic disorder
     Route: 065
     Dates: start: 20220530, end: 20220530
  7. FLUPHENAZINE [Suspect]
     Active Substance: FLUPHENAZINE
     Route: 065
     Dates: start: 20220612, end: 20220612
  8. FLUPHENAZINE [Suspect]
     Active Substance: FLUPHENAZINE
     Route: 065
     Dates: start: 20220618, end: 20220618
  9. FLUPENTIXOL [Suspect]
     Active Substance: FLUPENTIXOL
     Indication: Psychotic disorder
     Route: 065
     Dates: start: 20220618, end: 20220618

REACTIONS (2)
  - Extrapyramidal disorder [Recovered/Resolved]
  - Neuroleptic malignant syndrome [Recovered/Resolved]

NARRATIVE: CASE EVENT DATE: 20220601
